FAERS Safety Report 15353610 (Version 2)
Quarter: 2018Q3

REPORT INFORMATION
  Report Type: Spontaneous
  Country: ES (occurrence: ES)
  Receive Date: 20180905
  Receipt Date: 20180920
  Transmission Date: 20181010
  Serious: Yes (Death, Hospitalization)
  Sender: FDA-Public Use
  Company Number: ES-PFIZER INC-2018357110

PATIENT
  Age: 68 Year
  Sex: Male

DRUGS (11)
  1. CARBOPLATIN. [Suspect]
     Active Substance: CARBOPLATIN
     Indication: BLADDER TRANSITIONAL CELL CARCINOMA
     Dosage: UNK
     Route: 042
     Dates: start: 20170105, end: 20170302
  2. FENTANYL. [Concomitant]
     Active Substance: FENTANYL
     Indication: GROIN PAIN
     Dosage: 150.000 UG,EVERY 72 H
     Route: 048
     Dates: start: 20161219
  3. MEDI4736 [Suspect]
     Active Substance: DURVALUMAB
     Dosage: 1500 MG, EVERY 4 WEEKS
     Route: 042
     Dates: end: 20170104
  4. HYDROCHLOROTHIAZIDE. [Concomitant]
     Active Substance: HYDROCHLOROTHIAZIDE
     Indication: HYPERTENSION
     Dosage: 50.000 MG, EVERY DAY
     Route: 048
  5. OMEPRAZOLE. [Concomitant]
     Active Substance: OMEPRAZOLE
     Indication: PAIN
     Dosage: 1.000 G, 3X/DAY
     Route: 048
  6. MEDI4736 [Suspect]
     Active Substance: DURVALUMAB
     Indication: BLADDER TRANSITIONAL CELL CARCINOMA
     Dosage: 1500 MG, EVERY 4 WEEKS
     Route: 042
     Dates: start: 20161201, end: 20161201
  7. GEMCITABINE HYDROCHLORIDE. [Suspect]
     Active Substance: GEMCITABINE HYDROCHLORIDE
     Indication: BLADDER TRANSITIONAL CELL CARCINOMA
     Dosage: UNK
     Route: 042
     Dates: start: 20170105, end: 20170302
  8. GEMCITABINE HYDROCHLORIDE. [Suspect]
     Active Substance: GEMCITABINE HYDROCHLORIDE
     Dosage: UNK
     Route: 042
     Dates: start: 20151223, end: 20160316
  9. SIMVASTATIN. [Concomitant]
     Active Substance: SIMVASTATIN
     Indication: HYPERCHOLESTEROLAEMIA
     Dosage: 10.000 MG, EVERY DAY
     Route: 048
  10. IBUPROFEN. [Concomitant]
     Active Substance: IBUPROFEN
     Indication: GROIN PAIN
     Dosage: 600 MG, 3X/DAY
     Route: 048
     Dates: start: 20161219
  11. PARACETAMOL [Concomitant]
     Active Substance: ACETAMINOPHEN
     Indication: GROIN PAIN
     Dosage: 1 G, 3X/DAY
     Route: 048

REACTIONS (2)
  - Neutropenic sepsis [Recovered/Resolved]
  - Pancytopenia [Recovered/Resolved]

NARRATIVE: CASE EVENT DATE: 20170118
